FAERS Safety Report 11156903 (Version 2)
Quarter: 2015Q2

REPORT INFORMATION
  Report Type: Spontaneous
  Country: US (occurrence: US)
  Receive Date: 20150602
  Receipt Date: 20150617
  Transmission Date: 20150821
  Serious: Yes (Hospitalization, Disabling, Other)
  Sender: FDA-Public Use
  Company Number: US-ABBVIE-15P-163-1398941-00

PATIENT
  Age: 31 Year
  Sex: Female
  Weight: 87.62 kg

DRUGS (8)
  1. LUPRON DEPOT [Suspect]
     Active Substance: LEUPROLIDE ACETATE
     Indication: PRODUCT USED FOR UNKNOWN INDICATION
     Route: 065
     Dates: start: 20131126, end: 20131126
  2. PAROXETINE HCL [Concomitant]
     Active Substance: PAROXETINE HYDROCHLORIDE
     Indication: PRODUCT USED FOR UNKNOWN INDICATION
     Route: 048
  3. TORADOL [Concomitant]
     Active Substance: KETOROLAC TROMETHAMINE
     Indication: PAIN
     Dates: start: 201409, end: 201412
  4. LUPRON DEPOT [Suspect]
     Active Substance: LEUPROLIDE ACETATE
     Indication: PRODUCT USED FOR UNKNOWN INDICATION
     Route: 065
     Dates: start: 20131029, end: 20131029
  5. ALBUTEROL HFA [Concomitant]
     Active Substance: ALBUTEROL SULFATE
     Indication: PRODUCT USED FOR UNKNOWN INDICATION
     Route: 055
     Dates: start: 20130627
  6. FLONASE [Concomitant]
     Active Substance: FLUTICASONE PROPIONATE
     Indication: PRODUCT USED FOR UNKNOWN INDICATION
     Dosage: 2 SPRAYS DAILY
     Route: 045
     Dates: start: 20131111
  7. MOTRIN [Concomitant]
     Active Substance: IBUPROFEN
     Indication: PRODUCT USED FOR UNKNOWN INDICATION
     Dosage: 1 TAB Q12H PRN
     Route: 048
     Dates: start: 20131218
  8. SINGULAIR [Concomitant]
     Active Substance: MONTELUKAST SODIUM
     Indication: PRODUCT USED FOR UNKNOWN INDICATION
     Route: 048
     Dates: start: 20131111

REACTIONS (33)
  - Gait disturbance [Unknown]
  - Back pain [Unknown]
  - Walking aid user [Unknown]
  - Headache [Unknown]
  - Visual impairment [Unknown]
  - Dysuria [Unknown]
  - Bone pain [Unknown]
  - Emotional distress [Unknown]
  - Hot flush [Unknown]
  - Pain [Unknown]
  - Ovarian germ cell teratoma benign [Recovered/Resolved]
  - Local swelling [Unknown]
  - Sinusitis [Unknown]
  - Hemiparesis [Unknown]
  - Fatigue [Unknown]
  - Depression [Unknown]
  - Weight increased [Unknown]
  - Dizziness [Unknown]
  - Speech disorder [Unknown]
  - Nausea [Unknown]
  - Physical disability [Unknown]
  - Head injury [Unknown]
  - Disorientation [Unknown]
  - Tremor [Unknown]
  - Yawning [Unknown]
  - Dyspnoea [Unknown]
  - Loss of consciousness [Unknown]
  - Hypoaesthesia [Unknown]
  - Somatoform disorder [Unknown]
  - Pain in extremity [Unknown]
  - Arthralgia [Unknown]
  - Impaired work ability [Unknown]
  - Seizure like phenomena [Unknown]

NARRATIVE: CASE EVENT DATE: 20131214
